FAERS Safety Report 5136738-0 (Version None)
Quarter: 2006Q4

REPORT INFORMATION
  Report Type: 
  Country: None (occurrence: None)
  Receive Date: 20061023
  Receipt Date: 20051102
  Transmission Date: 20070319
  Serious: Yes (Hospitalization)
  Sender: FDA-Public Use
  Company Number: 8013232

PATIENT
  Age: 68 Year
  Sex: Female

DRUGS (5)
  1. PREDNISOLONE [Suspect]
     Indication: ASTHMA
     Dosage: 20 MG /D
  2. THEOPHYLLINE [Suspect]
  3. METFORMIN HCL [Suspect]
  4. MONTELUKAST [Suspect]
     Indication: ASTHMA
     Dosage: 10 MG /D
  5. FLUTICASONE PROPIONATE [Suspect]

REACTIONS (2)
  - ESCHERICHIA INFECTION [None]
  - PERITONITIS BACTERIAL [None]
